FAERS Safety Report 18631953 (Version 1)
Quarter: 2020Q4

REPORT INFORMATION
  Report Type: Report from Study
  Country: US (occurrence: US)
  Receive Date: 20201217
  Receipt Date: 20201217
  Transmission Date: 20210114
  Serious: Yes (Life-Threatening)
  Sender: FDA-Public Use
  Company Number: US-GILEAD-2020-0509202

PATIENT
  Age: 37 Year
  Sex: Male
  Weight: 120 kg

DRUGS (5)
  1. TOCILIZUMAB. [Suspect]
     Active Substance: TOCILIZUMAB
     Indication: COVID-19 PNEUMONIA
     Dosage: MOST RECENT DOSE OF BLINDED TOCILIZUMAB PRIOR TO SAE ONSET 07/DEC/2020 AT 20:27
     Route: 042
  2. REMDESIVIR. [Suspect]
     Active Substance: REMDESIVIR
     Indication: COVID-19 PNEUMONIA
     Dosage: MOST RECENT DOSE OF BLINDED TOCILIZUMAB PRIOR TO EVENT ONSET: 17/OCT/2020 AT 13:23
     Route: 042
     Dates: start: 20201207
  3. REMDESIVIR. [Suspect]
     Active Substance: REMDESIVIR
     Dosage: MOST RECENT DOSE (VOLUME 100 ML) OF REMDESIVIR PRIOR TO SAE ONSET 08/DEC/020 AT 15:33
     Route: 042
     Dates: start: 20201207
  4. REMDESIVIR. [Suspect]
     Active Substance: REMDESIVIR
     Dosage: MOST RECENT DOSE OF BLINDED TOCILIZUMAB PRIOR TO EVENT ONSET: 17/OCT/2020 AT 13:23
     Route: 042
     Dates: start: 20201207
  5. TOCILIZUMAB. [Suspect]
     Active Substance: TOCILIZUMAB
     Dosage: UNK
     Route: 042

REACTIONS (1)
  - Sinus bradycardia [Not Recovered/Not Resolved]

NARRATIVE: CASE EVENT DATE: 20201208
